FAERS Safety Report 9921186 (Version 1)
Quarter: 2014Q1

REPORT INFORMATION
  Report Type: Spontaneous
  Country: FR (occurrence: FR)
  Receive Date: 20140225
  Receipt Date: 20140225
  Transmission Date: 20141002
  Serious: Yes (Other)
  Sender: FDA-Public Use
  Company Number: FR-ASTRAZENECA-2014SE12117

PATIENT
  Age: 14923 Day
  Sex: Male

DRUGS (5)
  1. HYTACAND [Suspect]
     Indication: HYPERTENSION
     Dosage: 8 MG/12.5 MG AT MORNING
     Route: 048
  2. HYTACAND [Suspect]
     Indication: HYPERTENSION
     Dosage: 8 MG/12.5 MG 2 TABLETS AT MORNING
     Route: 048
  3. HYTACAND [Suspect]
     Indication: HYPERTENSION
     Dosage: 8 MG/12.5 MG 1 TABLET MORNING AND 1 TABLET AT NIGHT
     Route: 048
  4. AVLOCARDYL [Suspect]
     Indication: HYPERTENSION
     Route: 048
     Dates: end: 20131212
  5. ATARAX [Concomitant]
     Indication: SLEEP DISORDER

REACTIONS (3)
  - Blood pressure increased [Not Recovered/Not Resolved]
  - Somnolence [Unknown]
  - Drug ineffective [Recovered/Resolved]
